FAERS Safety Report 9990896 (Version 1)
Quarter: 2014Q1

REPORT INFORMATION
  Report Type: Spontaneous
  Country: US (occurrence: None)
  Receive Date: 20140212
  Receipt Date: 20140212
  Transmission Date: 20141002
  Serious: Yes (Other)
  Sender: FDA-Public Use
  Company Number: 1691676

PATIENT
  Sex: Female

DRUGS (6)
  1. BUPIVACAINE HCL [Suspect]
     Indication: CAESAREAN SECTION
     Dosage: 1/4 ML, UNKNOWN, UNKNOWN, INTRADISCAL (INTRASPINAL)?
     Route: 024
     Dates: start: 20130419, end: 20130419
  2. BUPIVACAINE HCL [Suspect]
     Indication: MYOMECTOMY
     Dosage: 1/4 ML, UNKNOWN, UNKNOWN, INTRADISCAL (INTRASPINAL)?
     Route: 024
     Dates: start: 20130419, end: 20130419
  3. LIDOCAINE HCL [Suspect]
     Indication: CAESAREAN SECTION
     Dosage: UNKNOWN, UNKNOWN, UNKNOWN, INTRADISCAL
     Route: 024
     Dates: start: 20130419, end: 20130419
  4. LIDOCAINE HCL [Suspect]
     Indication: MYOMECTOMY
     Dosage: UNKNOWN, UNKNOWN, UNKNOWN, INTRADISCAL
     Route: 024
     Dates: start: 20130419, end: 20130419
  5. EPINEPHRINE [Suspect]
     Indication: CAESAREAN SECTION
     Dosage: UNKNOWN, UNKNOWN, UNKNOWN, INTRADISCAL
     Route: 024
     Dates: start: 20130419, end: 20130419
  6. EPINEPHRINE [Suspect]
     Indication: MYOMECTOMY
     Dosage: UNKNOWN, UNKNOWN, UNKNOWN, INTRADISCAL
     Route: 024
     Dates: start: 20130419, end: 20130419

REACTIONS (1)
  - Drug ineffective [None]
